FAERS Safety Report 5207543-1 (Version None)
Quarter: 2006Q4

REPORT INFORMATION
  Report Type: 
  Country: None (occurrence: None)
  Receive Date: 20061030
  Receipt Date: 20060811
  Transmission Date: 20070319
  Serious: No
  Sender: FDA-Public Use
  Company Number: 256041

PATIENT
  Age: 76 Year
  Sex: Female
  Weight: 90.7 kg

DRUGS (3)
  1. LEVEMIR [Suspect]
     Indication: INSULIN-REQUIRING TYPE II DIABETES MELLITUS
     Dosage: 25 IU,QD, SUBCUTANEOUS
     Route: 058
     Dates: start: 20060701
  2. GLIMEPIRIDE (GLIMEPRIDE) [Concomitant]
  3. GLUCOPHAGE/00082701/(METFORMIN) [Concomitant]

REACTIONS (1)
  - BLOOD GLUCOSE FLUCTUATION [None]
